FAERS Safety Report 18833164 (Version 2)
Quarter: 2021Q1

REPORT INFORMATION
  Report Type: Spontaneous
  Country: JP (occurrence: JP)
  Receive Date: 20210201
  Receipt Date: 20210331
  Transmission Date: 20210419
  Serious: Yes (Other)
  Sender: FDA-Public Use
  Company Number: JP-ROCHE-2759936

PATIENT
  Age: 72 Year
  Sex: Male

DRUGS (3)
  1. RANIBIZUMAB. [Suspect]
     Active Substance: RANIBIZUMAB
     Indication: MACULAR OEDEMA
     Route: 050
  2. AFLIBERCEPT [Concomitant]
     Active Substance: AFLIBERCEPT
     Route: 050
  3. RANIBIZUMAB. [Suspect]
     Active Substance: RANIBIZUMAB
     Route: 050

REACTIONS (3)
  - Disease recurrence [Unknown]
  - Macular oedema [Unknown]
  - Visual acuity reduced [Unknown]
